FAERS Safety Report 8846416 (Version 1)
Quarter: 2012Q4

REPORT INFORMATION
  Report Type: 
  Country: GB (occurrence: GB)
  Receive Date: 20121018
  Receipt Date: 20121018
  Transmission Date: 20130627
  Serious: Yes (Other)
  Sender: FDA-Public Use
  Company Number: GB-RANBAXY-2012R1-60936

PATIENT
  Age: 32 Year
  Sex: Male

DRUGS (7)
  1. CLARITHROMYCIN [Suspect]
     Indication: LOWER RESPIRATORY TRACT INFECTION
     Dosage: 250 mg, bid
     Route: 065
     Dates: start: 20101224, end: 20101229
  2. ZAPONEX [Suspect]
     Indication: SCHIZOPHRENIA
     Dosage: 300mg mane and 425mg nocte
     Route: 048
     Dates: start: 20060308, end: 20101229
  3. AMISULPRIDE [Concomitant]
     Indication: PRODUCT USED FOR UNKNOWN INDICATION
     Dosage: 200 mg, bid
     Route: 065
  4. CALCEOS [Concomitant]
     Indication: PRODUCT USED FOR UNKNOWN INDICATION
     Dosage: UNK
     Route: 065
  5. OMEPRAZOLE [Concomitant]
     Indication: PRODUCT USED FOR UNKNOWN INDICATION
     Dosage: UNK
     Route: 065
  6. PARACETAMOL [Concomitant]
     Indication: PRODUCT USED FOR UNKNOWN INDICATION
     Dosage: 1 g, qid
     Route: 065
  7. VALPROATE SODIUM [Concomitant]
     Indication: PRODUCT USED FOR UNKNOWN INDICATION
     Dosage: 200mg mane and 400mg nocte
     Route: 065

REACTIONS (9)
  - Lower respiratory tract infection [Recovered/Resolved]
  - Pyrexia [Recovered/Resolved]
  - Headache [Recovered/Resolved]
  - Neutropenia [Recovered/Resolved]
  - Neutrophil count decreased [Recovered/Resolved]
  - Productive cough [Recovered/Resolved]
  - Oropharyngeal pain [Recovered/Resolved]
  - Tachycardia [Recovered/Resolved]
  - White blood cell count decreased [Recovered/Resolved]
